FAERS Safety Report 6421334-5 (Version None)
Quarter: 2009Q4

REPORT INFORMATION
  Report Type: 
  Country: None (occurrence: None)
  Receive Date: 20091030
  Receipt Date: 20091020
  Transmission Date: 20100525
  Serious: Yes (Other)
  Sender: FDA-Public Use
  Company Number: PHHY2009ZA44073

PATIENT
  Sex: Female
  Weight: 53 kg

DRUGS (5)
  1. ZOMETA [Suspect]
     Indication: BONE NEOPLASM MALIGNANT
     Dosage: 4 MG IVI, 4 WEEKLY
     Dates: start: 20060414, end: 20090911
  2. DURAGESIC-100 [Concomitant]
     Dosage: 75 UNK, UNK
     Route: 062
  3. TREPILINE [Concomitant]
     Dosage: 10 MG, UNK
     Route: 048
  4. LENTOGESIC [Concomitant]
  5. XANOR [Concomitant]

REACTIONS (7)
  - BONE DISORDER [None]
  - ERYTHEMA [None]
  - OSTEONECROSIS [None]
  - PAIN [None]
  - PALPITATIONS [None]
  - PURULENT DISCHARGE [None]
  - SWELLING [None]
